FAERS Safety Report 13584966 (Version 1)
Quarter: 2017Q2

REPORT INFORMATION
  Report Type: Spontaneous
  Country: US (occurrence: US)
  Receive Date: 20170526
  Receipt Date: 20170526
  Transmission Date: 20170830
  Serious: Yes (Other)
  Sender: FDA-Public Use
  Company Number: US-STRIDES ARCOLAB LIMITED-2017SP008382

PATIENT

DRUGS (1)
  1. FERROUS GLUCONATE [Suspect]
     Active Substance: FERROUS GLUCONATE
     Indication: PRODUCT USED FOR UNKNOWN INDICATION
     Dosage: 325MG (1-3 TABLETS PER DAY)
     Route: 048

REACTIONS (5)
  - Intentional product misuse [Unknown]
  - Haemochromatosis [Recovered/Resolved]
  - Fatigue [Unknown]
  - Iron overload [Recovered/Resolved]
  - Incorrect drug administration duration [Unknown]
